FAERS Safety Report 23240146 (Version 3)
Quarter: 2024Q1

REPORT INFORMATION
  Report Type: Spontaneous
  Country: AT (occurrence: AT)
  Receive Date: 20231129
  Receipt Date: 20240104
  Transmission Date: 20240410
  Serious: Yes (Other)
  Sender: FDA-Public Use
  Company Number: AT-AMGEN-AUTSP2023201295

PATIENT
  Age: 50 Year
  Sex: Male

DRUGS (11)
  1. TRASTUZUMAB [Suspect]
     Active Substance: TRASTUZUMAB
     Indication: Oesophageal cancer metastatic
     Dosage: PALLIATIVE FIRST-LINE THERAPY, CYCLIC
     Route: 065
     Dates: start: 202002, end: 202011
  2. TRASTUZUMAB [Suspect]
     Active Substance: TRASTUZUMAB
     Dosage: THIRD-LINE THERAPY, CYCLIC
     Dates: start: 2021
  3. TRASTUZUMAB [Suspect]
     Active Substance: TRASTUZUMAB
     Dosage: SIXTH-LINE IMMUNOCHEMOTHERAPY, CYCLIC
     Route: 065
     Dates: start: 202205
  4. FLUOROURACIL\LEUCOVORIN CALCIUM\OXALIPLATIN [Concomitant]
     Active Substance: FLUOROURACIL\LEUCOVORIN CALCIUM\OXALIPLATIN
     Dosage: PALLIATIVE FIRST-LINE THERAPY
     Route: 065
     Dates: start: 202002, end: 202011
  5. RAMUCIRUMAB [Concomitant]
     Active Substance: RAMUCIRUMAB
     Dosage: SECOND-LINE THERAPY
     Route: 065
     Dates: start: 202011, end: 202105
  6. FLUOROURACIL\IRINOTECAN\LEUCOVORIN [Concomitant]
     Active Substance: FLUOROURACIL\IRINOTECAN\LEUCOVORIN
     Dosage: SECOND-LINE THERAPY
     Route: 065
     Dates: start: 202011, end: 202105
  7. PACLITAXEL [Concomitant]
     Active Substance: PACLITAXEL
     Dosage: THIRD-LINE THERAPY
     Route: 065
     Dates: start: 2021
  8. ADO-TRASTUZUMAB EMTANSINE [Concomitant]
     Active Substance: ADO-TRASTUZUMAB EMTANSINE
     Dosage: FOURTH-LINE THERAPY
     Route: 065
     Dates: start: 2021
  9. TRASTUZUMAB DERUXTECAN [Concomitant]
     Active Substance: TRASTUZUMAB DERUXTECAN
     Dosage: 6.4 MG/KG, EVERY 3 WEEKS (FIFTH-LINE THERAPY)
     Route: 042
     Dates: start: 202111
  10. NIVOLUMAB [Concomitant]
     Active Substance: NIVOLUMAB
     Dosage: SIXTH-LINE IMMUNOCHEMOTHERAPY
     Route: 065
     Dates: start: 202205
  11. FLUOROURACIL [Concomitant]
     Active Substance: FLUOROURACIL
     Dosage: UNK
     Route: 065
     Dates: end: 202011

REACTIONS (2)
  - Polyneuropathy [Recovered/Resolved]
  - Thrombocytopenia [Unknown]

NARRATIVE: CASE EVENT DATE: 20200101
